FAERS Safety Report 9170254 (Version 1)
Quarter: 2013Q1

REPORT INFORMATION
  Report Type: Spontaneous
  Country: SE (occurrence: None)
  Receive Date: 20130311
  Receipt Date: 20130311
  Transmission Date: 20140127
  Serious: Yes (Hospitalization)
  Sender: FDA-Public Use
  Company Number: AUR-APL-2013-02117

PATIENT
  Age: 70 Year
  Sex: Male

DRUGS (6)
  1. VALACYCLOVIR [Suspect]
     Dosage: 1000 MG (500 MG, 2 IN 1 D), ORAL
     Route: 048
     Dates: start: 20120813, end: 20120924
  2. INDIGO CARMINE [Suspect]
     Dosage: ORAL, - STOPPED
     Route: 048
  3. BACTRIM FORTE(BACTRIM) [Concomitant]
  4. FLUDARABINE(FLUDARABINE) [Concomitant]
  5. CYCLOPHOSFAMIDE(CYCLOPHOSPHAMIDE) [Concomitant]
  6. RITUXIMAB(RITUXIMAB) [Concomitant]

REACTIONS (4)
  - Pruritus [None]
  - Skin discolouration [None]
  - Pyrexia [None]
  - Rash erythematous [None]
